FAERS Safety Report 20608852 (Version 1)
Quarter: 2022Q1

REPORT INFORMATION
  Report Type: Spontaneous
  Country: US (occurrence: US)
  Receive Date: 20220317
  Receipt Date: 20220317
  Transmission Date: 20220423
  Serious: Yes (Other)
  Sender: FDA-Public Use
  Company Number: US-BAYER-2022A035058

PATIENT
  Age: 45 Year
  Sex: Female
  Weight: 102.9 kg

DRUGS (6)
  1. MIRENA [Suspect]
     Active Substance: LEVONORGESTREL
     Dosage: 20?G/DAY
     Route: 015
     Dates: end: 20220223
  2. KORLYM [Suspect]
     Active Substance: MIFEPRISTONE
     Indication: Cushing^s syndrome
     Dosage: UNK
     Route: 048
     Dates: start: 20210915, end: 20211011
  3. AIMOVIG [Concomitant]
     Active Substance: ERENUMAB-AOOE
  4. ATENOLOL [Concomitant]
     Active Substance: ATENOLOL
  5. LEXAPRO [Concomitant]
     Active Substance: ESCITALOPRAM OXALATE
  6. LISINOPRIL [Concomitant]
     Active Substance: LISINOPRIL

REACTIONS (15)
  - Hypokalaemia [None]
  - Nasal congestion [None]
  - Cough [None]
  - Vomiting [None]
  - Dehydration [None]
  - Pollakiuria [None]
  - Swelling face [None]
  - Muscle spasms [None]
  - Rash papular [None]
  - Oedema [Recovering/Resolving]
  - Peripheral swelling [None]
  - Muscle tightness [None]
  - Vaginal haemorrhage [Recovering/Resolving]
  - Muscle spasms [None]
  - Nausea [Recovering/Resolving]

NARRATIVE: CASE EVENT DATE: 20220201
